FAERS Safety Report 5450169-5 (Version None)
Quarter: 2007Q3

REPORT INFORMATION
  Report Type: 
  Country: None (occurrence: None)
  Receive Date: 20070912
  Receipt Date: 20070829
  Transmission Date: 20080115
  Serious: Yes (Other)
  Sender: FDA-Public Use
  Company Number: US-BAUSCH-2007BL003160

PATIENT
  Age: 49 Year
  Sex: Female
  Weight: 84 kg

DRUGS (1)
  1. FLUOCINOLONE ACETONIDE INTRAVITREAL IMPLANT (2 MG) [Suspect]
     Indication: CHOROIDITIS
     Route: 047
     Dates: start: 20010801, end: 20050201

REACTIONS (1)
  - VITREOUS FIBRIN [None]
